FAERS Safety Report 7556474-0 (Version None)
Quarter: 2011Q2

REPORT INFORMATION
  Report Type: 
  Country: None (occurrence: None)
  Receive Date: 20110615
  Receipt Date: 20110615
  Transmission Date: 20111010
  Serious: No
  Sender: FDA-Public Use
  Company Number: None

PATIENT
  Age: 57 Year
  Sex: Male
  Weight: 107.9561 kg

DRUGS (2)
  1. LAMOTRIGINE [Suspect]
     Indication: OBSESSIVE-COMPULSIVE DISORDER
     Dosage: ONE TABLET PER DAY
     Dates: start: 20080109, end: 20110616
  2. CELEXA [Suspect]
     Indication: OBSESSIVE-COMPULSIVE DISORDER
     Dosage: ONE TABLET PER DAY
     Dates: start: 20080109, end: 20110616

REACTIONS (3)
  - LACERATION [None]
  - INADEQUATE ANALGESIA [None]
  - TOOTH EXTRACTION [None]
